FAERS Safety Report 4322158-5 (Version None)
Quarter: 2004Q1

REPORT INFORMATION
  Report Type: 
  Country: None (occurrence: None)
  Receive Date: 20040319
  Receipt Date: 20040302
  Transmission Date: 20041129
  Serious: Yes (Hospitalization)
  Sender: FDA-Public Use
  Company Number: F01200400429

PATIENT
  Age: 49 Year
  Sex: Female

DRUGS (9)
  1. OXALIPLATIN [Suspect]
     Indication: COLORECTAL CANCER METASTATIC
     Dosage: 136 MG Q2W
     Route: 042
     Dates: start: 20040126, end: 20040126
  2. FLUOROURACIL [Suspect]
     Dosage: 639 MG BOLUS + 958 MG CONTINUOUS INFUSION (44 HOURS) Q2W
     Route: 042
     Dates: start: 20040126, end: 20040126
  3. LEUCOVORIN CALCIUM [Suspect]
     Dosage: 319 MG Q2W
     Route: 042
     Dates: start: 20040126, end: 20040126
  4. DILAUDID [Concomitant]
  5. GRAVOL (DIMENHYDRAMINE) [Concomitant]
  6. LACTULOSE [Concomitant]
  7. DOMPERIDONE [Concomitant]
  8. COUMADIN [Concomitant]
  9. PROCHLORPERAZINE [Concomitant]

REACTIONS (11)
  - DEHYDRATION [None]
  - INFECTION [None]
  - LYMPHADENOPATHY [None]
  - MARKEDLY REDUCED DIETARY INTAKE [None]
  - MASS [None]
  - NECROSIS [None]
  - NEUTROPENIA [None]
  - ORAL PAIN [None]
  - PAROTID DUCT CYST [None]
  - PAROTITIS [None]
  - SINUS DISORDER [None]
